FAERS Safety Report 8771098 (Version 3)
Quarter: 2013Q2

REPORT INFORMATION
  Report Type: Report from Study
  Country: JP (occurrence: JP)
  Receive Date: 20120906
  Receipt Date: 20130603
  Transmission Date: 20140414
  Serious: Yes (Hospitalization)
  Sender: FDA-Public Use
  Company Number: JP-009507513-1208JPN009753

PATIENT
  Age: 50 Year
  Sex: Male
  Weight: 63 kg

DRUGS (8)
  1. PEGINTRON [Suspect]
     Indication: CHRONIC HEPATITIS C
     Dosage: 100 MICROGRAM, QW,DAILY DOSE UNKNOWN
     Route: 058
     Dates: start: 20120508, end: 20120710
  2. REBETOL [Suspect]
     Indication: CHRONIC HEPATITIS C
     Dosage: 800 MG, QD
     Route: 048
     Dates: start: 20120508, end: 20120528
  3. REBETOL [Suspect]
     Dosage: 600 MG, QD
     Route: 048
     Dates: start: 20120529, end: 20120604
  4. REBETOL [Suspect]
     Dosage: 400 MG, QD
     Route: 048
     Dates: start: 20120605, end: 20120710
  5. TELAVIC [Suspect]
     Indication: CHRONIC HEPATITIS C
     Dosage: 2250 MG, QD
     Route: 048
     Dates: start: 20120508, end: 20120710
  6. ALLEGRA [Concomitant]
     Indication: PROPHYLAXIS
     Dosage: 120 MG, QD,FORMULATION:POR
     Route: 048
     Dates: start: 20120508, end: 20120710
  7. RIKKUNSHI-TO [Concomitant]
     Indication: PROPHYLAXIS
     Dosage: 7.5 G, QD,FORMULATION:POR
     Route: 048
     Dates: start: 20120508, end: 20120710
  8. LOXOPROFEN [Concomitant]
     Indication: PYREXIA
     Dosage: 60 MG, PRN, DAILY, FORMULATION:POR
     Route: 048
     Dates: start: 20120508, end: 20120710

REACTIONS (1)
  - Pancreatitis acute [Recovering/Resolving]
